FAERS Safety Report 9961495 (Version 1)
Quarter: 2014Q1

REPORT INFORMATION
  Report Type: Spontaneous
  Country: CH (occurrence: CH)
  Receive Date: 20140305
  Receipt Date: 20140305
  Transmission Date: 20141002
  Serious: Yes (Hospitalization, Other)
  Sender: FDA-Public Use
  Company Number: CH-ASTRAZENECA-2014SE13732

PATIENT
  Age: 78 Year
  Sex: Female
  Weight: 75 kg

DRUGS (8)
  1. OMEPRAZOL [Suspect]
     Route: 048
  2. METOPROLOL [Concomitant]
  3. ZOLPIDEM [Concomitant]
  4. CALCIUM/VITAMIN D3 [Concomitant]
     Dosage: 500 MG/440 IU/DAY
  5. IBUPROFEN [Concomitant]
     Dosage: 400 MG/DAY AS NEEDED
  6. LERCANIDIPIN [Concomitant]
  7. PERINDOPRIL [Concomitant]
  8. VITAMIN D3 [Concomitant]
     Dosage: MONTHLY
     Route: 030

REACTIONS (7)
  - Grand mal convulsion [Recovered/Resolved]
  - Cognitive disorder [Recovered/Resolved]
  - Electrocardiogram QT prolonged [Recovered/Resolved]
  - Electrocardiogram ST segment depression [Recovered/Resolved]
  - Hypocalcaemia [Recovered/Resolved]
  - Hypokalaemia [Recovered/Resolved]
  - Hypomagnesaemia [Recovered/Resolved]
